FAERS Safety Report 7047026-X (Version None)
Quarter: 2010Q4

REPORT INFORMATION
  Report Type: 
  Country: None (occurrence: None)
  Receive Date: 20101015
  Receipt Date: 20101008
  Transmission Date: 20110411
  Serious: Yes (Hospitalization)
  Sender: FDA-Public Use
  Company Number: US-GENZYME-CLOF-1001210

PATIENT
  Sex: Male
  Weight: 60.8 kg

DRUGS (7)
  1. CLOLAR [Suspect]
     Indication: ACUTE LYMPHOCYTIC LEUKAEMIA
     Dosage: 70 MG, QDX5
     Route: 042
     Dates: start: 20100823, end: 20100827
  2. TOPOTECAN [Suspect]
     Indication: ACUTE LYMPHOCYTIC LEUKAEMIA
     Dosage: 17 MG, QDX5
     Route: 065
     Dates: start: 20100820, end: 20100825
  3. VINORELBINE [Suspect]
     Indication: ACUTE LYMPHOCYTIC LEUKAEMIA
     Dosage: 34 MG, QD
     Route: 065
     Dates: start: 20100820, end: 20100820
  4. VINORELBINE [Suspect]
     Dosage: 34 MG, QD
     Route: 065
     Dates: start: 20100827, end: 20100827
  5. VINORELBINE [Suspect]
     Dosage: 34 MG, QD
     Route: 065
     Dates: start: 20100903, end: 20100903
  6. THIOTEPA [Suspect]
     Indication: ACUTE LYMPHOCYTIC LEUKAEMIA
     Dosage: 26 MG, QD
     Route: 065
     Dates: start: 20100822, end: 20100822
  7. DEXAMETHASONE [Suspect]
     Indication: ACUTE LYMPHOCYTIC LEUKAEMIA
     Dosage: 25 MG, QDX3
     Route: 042
     Dates: start: 20100823

REACTIONS (3)
  - DEHYDRATION [None]
  - FEBRILE NEUTROPENIA [None]
  - PNEUMONITIS [None]
